FAERS Safety Report 14268207 (Version 1)
Quarter: 2017Q4

REPORT INFORMATION
  Report Type: Spontaneous
  Country: US (occurrence: US)
  Receive Date: 20171211
  Receipt Date: 20171211
  Transmission Date: 20180321
  Serious: Yes (Other)
  Sender: FDA-Public Use
  Company Number: None

PATIENT
  Age: 37 Year
  Sex: Female
  Weight: 127.35 kg

DRUGS (3)
  1. HUMALOG [Concomitant]
     Active Substance: INSULIN LISPRO
  2. BASAGLAR [Suspect]
     Active Substance: INSULIN GLARGINE
     Indication: DRUG THERAPY
     Dosage: ?          QUANTITY:40 DROP(S);?
     Route: 058
     Dates: start: 20170531, end: 20171125
  3. DIAZEPAM. [Concomitant]
     Active Substance: DIAZEPAM

REACTIONS (5)
  - Weight increased [None]
  - Anxiety [None]
  - Panic attack [None]
  - Nightmare [None]
  - Palpitations [None]

NARRATIVE: CASE EVENT DATE: 20171125
